FAERS Safety Report 18297554 (Version 1)
Quarter: 2020Q3

REPORT INFORMATION
  Report Type: Spontaneous
  Country: CZ (occurrence: CZ)
  Receive Date: 20200923
  Receipt Date: 20200923
  Transmission Date: 20201103
  Serious: Yes (Life-Threatening, Hospitalization, Other)
  Sender: FDA-Public Use
  Company Number: CZ-LUPIN PHARMACEUTICALS INC.-2020-06231

PATIENT
  Age: 9 Year
  Sex: Female
  Weight: 30 kg

DRUGS (9)
  1. AMIKACIN. [Concomitant]
     Active Substance: AMIKACIN
     Indication: MYCOBACTERIUM ABSCESSUS INFECTION
     Dosage: 400 MILLIGRAM, QD (DIVIDED INTO 2 DAILY DOSES)
     Route: 065
  2. POSACONAZOLE [Concomitant]
     Active Substance: POSACONAZOLE
     Indication: ANTIFUNGAL TREATMENT
     Dosage: 112 MILLIGRAM, QD (IN 3 DIVIDED DOSES)
     Route: 065
  3. PREDNISONE. [Concomitant]
     Active Substance: PREDNISONE
     Indication: IMMUNOSUPPRESSANT DRUG THERAPY
     Dosage: 1.67 MILLIGRAM/KILOGRAM, QD (INCREASED FROM 0.67 MG/KG/DAY IN SUSPICION OF EXACERBATION OF GRAFT VER
     Route: 065
  4. LINEZOLID. [Suspect]
     Active Substance: LINEZOLID
     Indication: MYCOBACTERIUM ABSCESSUS INFECTION
     Dosage: 810 MILLIGRAM, QD (DIVIDED INTO 3 DOSES PER DAY)
     Route: 065
  5. MEROPENEM. [Concomitant]
     Active Substance: MEROPENEM
     Indication: MYCOBACTERIUM ABSCESSUS INFECTION
     Dosage: 3 GRAM, QD (3G/DAY IN 3 DIVIDED DOSES)
     Route: 065
  6. PREDNISONE. [Concomitant]
     Active Substance: PREDNISONE
     Dosage: 0.67 MILLIGRAM/KILOGRAM, QD
     Route: 065
  7. SIROLIMUS. [Concomitant]
     Active Substance: SIROLIMUS
     Indication: IMMUNOSUPPRESSANT DRUG THERAPY
     Dosage: UNK
     Route: 065
  8. BUDESONIDE. [Concomitant]
     Active Substance: BUDESONIDE
     Indication: IMMUNOSUPPRESSANT DRUG THERAPY
     Dosage: 0.3 MILLIGRAM/KILOGRAM, QD
     Route: 065
  9. VALACICLOVIR [Concomitant]
     Active Substance: VALACYCLOVIR HYDROCHLORIDE
     Indication: ANTIVIRAL TREATMENT
     Dosage: 500 MILLIGRAM, QD
     Route: 065

REACTIONS (8)
  - Kussmaul respiration [Recovered/Resolved]
  - Lactic acidosis [Recovered/Resolved]
  - Condition aggravated [Recovered/Resolved]
  - Toxicity to various agents [Recovered/Resolved]
  - Myelosuppression [Recovered/Resolved]
  - Altered state of consciousness [Recovered/Resolved]
  - Neuropathy peripheral [Not Recovered/Not Resolved]
  - Vomiting [Recovered/Resolved]
